FAERS Safety Report 4887500-5 (Version None)
Quarter: 2006Q1

REPORT INFORMATION
  Report Type: 
  Country: None (occurrence: None)
  Receive Date: 20060123
  Receipt Date: 20060111
  Transmission Date: 20060701
  Serious: Yes (Other)
  Sender: FDA-Public Use
  Company Number: DE-JNJFOC-20051204872

PATIENT
  Sex: Female
  Weight: 69 kg

DRUGS (1)
  1. LYRINEL XL [Suspect]
     Indication: INCONTINENCE
     Route: 048

REACTIONS (4)
  - ABDOMINAL PAIN UPPER [None]
  - DRUG INEFFECTIVE [None]
  - OPTIC NERVE INJURY [None]
  - VISION BLURRED [None]
